FAERS Safety Report 9862303 (Version 2)
Quarter: 2014Q1

REPORT INFORMATION
  Report Type: Spontaneous
  Country: JP (occurrence: JP)
  Receive Date: 20140203
  Receipt Date: 20140203
  Transmission Date: 20141002
  Serious: Yes (Life-Threatening, Hospitalization, Other)
  Sender: FDA-Public Use
  Company Number: JP-PFIZER INC-2013367965

PATIENT
  Age: 51 Year
  Sex: Male

DRUGS (13)
  1. ANCARON [Suspect]
     Indication: CARDIAC FAILURE
     Dosage: 100 MG, 2X/DAY
     Route: 048
     Dates: start: 20071127, end: 20121217
  2. ANCARON [Suspect]
     Indication: VENTRICULAR ARRHYTHMIA
  3. ANCARON [Suspect]
     Indication: CARDIAC DISORDER
  4. SPIRONOLACTONE [Suspect]
     Indication: CARDIAC FAILURE
     Dosage: 12.5 MG, 2X/DAY
  5. PREDONINE [Suspect]
     Indication: THYROIDITIS
     Dosage: 30 MG, UNK
     Route: 048
     Dates: start: 20121217
  6. PREDONINE [Suspect]
     Dosage: TAPERED BY ABOUT 5 MG EVERY COUPLE OF WEEKS
     Route: 048
  7. PREDONINE [Suspect]
     Dosage: LESS THAN 5 MG
     Route: 048
  8. ARTIST [Concomitant]
     Indication: CARDIAC FAILURE
     Dosage: UNK
  9. PIMOBENDAN [Concomitant]
     Indication: CARDIAC FAILURE
     Dosage: UNK
  10. DIART [Concomitant]
     Dosage: UNK
  11. DIGOXIN [Concomitant]
  12. ACECOL [Concomitant]
     Indication: DYSLIPIDAEMIA
     Dosage: UNK
  13. TAKEPRON [Concomitant]
     Indication: PROPHYLAXIS AGAINST GASTROINTESTINAL ULCER
     Dosage: UNK

REACTIONS (8)
  - Thyroiditis [Recovered/Resolved]
  - Cardiac failure [Recovering/Resolving]
  - Hepatic congestion [Unknown]
  - Renal venous congestion [Unknown]
  - Ventricular extrasystoles [Recovered/Resolved]
  - Ventricular tachycardia [Unknown]
  - Secondary hypothyroidism [Unknown]
  - Gynaecomastia [Unknown]
